FAERS Safety Report 6587611-2 (Version None)
Quarter: 2010Q1

REPORT INFORMATION
  Report Type: 
  Country: None (occurrence: None)
  Receive Date: 20100218
  Receipt Date: 20100115
  Transmission Date: 20100710
  Serious: Yes (Other)
  Sender: FDA-Public Use
  Company Number: US-JNJFOC-20100202453

PATIENT
  Age: 11 Year
  Sex: Female
  Weight: 57.15 kg

DRUGS (5)
  1. MOTRIN IB [Suspect]
     Indication: PHARYNGITIS STREPTOCOCCAL
     Dosage: ALTERNATING DOSE WITH MOTRIN EVERY 4 HOURS
  2. MOTRIN IB [Suspect]
     Indication: PYREXIA
     Dosage: ALTERNATING DOSE WITH MOTRIN EVERY 4 HOURS
  3. EXTRA STRENGTH TYLENOL [Suspect]
     Indication: PHARYNGITIS STREPTOCOCCAL
     Dosage: ALTERNATING DOSE WITH MOTRIN EVERY 4 HOURS
  4. EXTRA STRENGTH TYLENOL [Suspect]
     Indication: HEADACHE
     Dosage: ALTERNATING DOSE WITH MOTRIN EVERY 4 HOURS
  5. EXTRA STRENGTH TYLENOL [Suspect]
     Indication: PYREXIA
     Dosage: ALTERNATING DOSE WITH MOTRIN EVERY 4 HOURS

REACTIONS (2)
  - HALLUCINATION [None]
  - PRODUCT QUALITY ISSUE [None]
